FAERS Safety Report 8910795 (Version 1)
Quarter: 2012Q4

REPORT INFORMATION
  Report Type: 
  Country: US (occurrence: US)
  Receive Date: 20121115
  Receipt Date: 20121115
  Transmission Date: 20130627
  Serious: Yes (Other)
  Sender: FDA-Public Use
  Company Number: US-ASTRAZENECA-2012SE84587

PATIENT
  Age: 47 Year
  Sex: Male

DRUGS (3)
  1. BRILINTA [Suspect]
     Indication: ACUTE CORONARY SYNDROME
     Route: 048
     Dates: start: 201208
  2. BRILINTA [Suspect]
     Indication: ACUTE MYOCARDIAL INFARCTION
     Route: 048
     Dates: start: 201208
  3. BABY ASPIRIN [Suspect]
     Dates: start: 201208

REACTIONS (3)
  - Acute coronary syndrome [Unknown]
  - Device occlusion [Unknown]
  - Drug ineffective [Unknown]
